FAERS Safety Report 6749696-X (Version None)
Quarter: 2010Q2

REPORT INFORMATION
  Report Type: 
  Country: None (occurrence: None)
  Receive Date: 20100601
  Receipt Date: 20100525
  Transmission Date: 20101027
  Serious: Yes (Other)
  Sender: FDA-Public Use
  Company Number: US-GENZYME-CERZ-1001290

PATIENT

DRUGS (7)
  1. CEREZYME [Suspect]
     Indication: GAUCHER'S DISEASE
     Dosage: 3200 U, Q2W
     Route: 042
     Dates: start: 19970401
  2. BONIVA [Concomitant]
     Indication: OSTEOPOROSIS
     Dosage: UNK
  3. DIOVAN [Concomitant]
     Indication: HYPERTENSION
     Dosage: UNK
  4. NORVASC [Concomitant]
     Indication: HYPERTENSION
     Dosage: UNK
  5. METOPROLOL TARTRATE [Concomitant]
     Indication: HYPERTENSION
     Dosage: UNK
  6. SINEMET [Concomitant]
     Indication: PARKINSON'S DISEASE
     Dosage: UNK
  7. ATIVAN [Concomitant]
     Indication: ANXIETY
     Dosage: UNK

REACTIONS (1)
  - PARKINSON'S DISEASE [None]
